FAERS Safety Report 24642290 (Version 1)
Quarter: 2024Q4

REPORT INFORMATION
  Report Type: Report from Study
  Country: US (occurrence: US)
  Receive Date: 20241120
  Receipt Date: 20241120
  Transmission Date: 20250115
  Serious: Yes (Life-Threatening, Other)
  Sender: EMD SERONO INC
  Company Number: US-Merck Healthcare KGaA-2024060637

PATIENT
  Sex: Female

DRUGS (1)
  1. MAVENCLAD [Suspect]
     Active Substance: CLADRIBINE
     Indication: Multiple sclerosis
     Dosage: YEAR ONE THERAPY
     Route: 048
     Dates: start: 20240129

REACTIONS (5)
  - Post procedural stroke [Unknown]
  - Hypertension [Unknown]
  - Alopecia [Recovering/Resolving]
  - Multiple sclerosis relapse [Unknown]
  - Fatigue [Unknown]
